FAERS Safety Report 25112114 (Version 1)
Quarter: 2025Q1

REPORT INFORMATION
  Report Type: Spontaneous
  Country: BR (occurrence: BR)
  Receive Date: 20250324
  Receipt Date: 20250324
  Transmission Date: 20250409
  Serious: Yes (Other)
  Sender: MEITHEAL PHARMACEUTICALS
  Company Number: BR-MEITHEAL-2025MPLIT00101

PATIENT
  Age: 76 Year
  Sex: Male

DRUGS (8)
  1. AZACITIDINE [Suspect]
     Active Substance: AZACITIDINE
     Indication: Myelodysplastic syndrome with multilineage dysplasia
     Dosage: FOR 7 DAYS DURATION; FIRST CYCLE
     Route: 058
     Dates: start: 20221212
  2. AZACITIDINE [Suspect]
     Active Substance: AZACITIDINE
     Dosage: FIRST TWO INJECTIONS; SECOND CYCLE
     Route: 058
     Dates: start: 20230109, end: 20230111
  3. AZACITIDINE [Suspect]
     Active Substance: AZACITIDINE
     Dosage: FOURTH DOSE (MESOGASTRIUM); SECOND CYCLE
     Route: 058
     Dates: start: 20230117, end: 20230120
  4. AZACITIDINE [Suspect]
     Active Substance: AZACITIDINE
     Dosage: SEVEN CYCLES
     Route: 042
     Dates: start: 2023
  5. ERYTHROPOIETIN [Concomitant]
     Active Substance: ERYTHROPOIETIN
     Indication: Anaemia
     Route: 065
  6. CYCLOSPORINE [Concomitant]
     Active Substance: CYCLOSPORINE
     Indication: Anaemia
     Route: 065
  7. HYDROXYZINE [Concomitant]
     Active Substance: HYDROXYZINE HYDROCHLORIDE
     Indication: Product used for unknown indication
     Route: 065
  8. ONDANSETRON [Concomitant]
     Active Substance: ONDANSETRON
     Indication: Product used for unknown indication
     Route: 065

REACTIONS (1)
  - Dermatitis bullous [Recovered/Resolved]

NARRATIVE: CASE EVENT DATE: 20230111
